FAERS Safety Report 5603789-9 (Version None)
Quarter: 2008Q1

REPORT INFORMATION
  Report Type: 
  Country: None (occurrence: None)
  Receive Date: 20080122
  Receipt Date: 20080117
  Transmission Date: 20080703
  Serious: Yes (Hospitalization)
  Sender: FDA-Public Use
  Company Number: 20084608

PATIENT
  Age: 70 Year
  Sex: Male

DRUGS (1)
  1. LIORESAL [Suspect]
     Indication: MUSCLE SPASTICITY
     Dosage: 200 TO 225 UCGS PER DAY, INTRATHECAL
     Route: 037

REACTIONS (2)
  - DRUG EFFECT DECREASED [None]
  - GRANULOMA [None]
